FAERS Safety Report 5567714-1 (Version None)
Quarter: 2007Q4

REPORT INFORMATION
  Report Type: 
  Country: None (occurrence: None)
  Receive Date: 20071210
  Receipt Date: 20071127
  Transmission Date: 20080405
  Serious: Yes (Other)
  Sender: FDA-Public Use
  Company Number: AECAN200700273

PATIENT
  Age: 38 Year
  Sex: Male

DRUGS (1)
  1. GAMUNEX [Suspect]
     Indication: DRUG USE FOR UNKNOWN INDICATION
     Dosage: 57.5 GM; TOTAL; IV
     Route: 042
     Dates: start: 20071126, end: 20071126

REACTIONS (1)
  - TRANSFUSION-RELATED ACUTE LUNG INJURY [None]
